FAERS Safety Report 10094645 (Version 1)
Quarter: 2014Q2

REPORT INFORMATION
  Report Type: Spontaneous
  Country: GB (occurrence: GB)
  Receive Date: 20140422
  Receipt Date: 20140422
  Transmission Date: 20141212
  Serious: Yes (Death, Hospitalization, Other)
  Sender: FDA-Public Use
  Company Number: GB-ASTELLAS-2014US003826

PATIENT
  Age: 48 Year
  Sex: Female

DRUGS (7)
  1. TARCEVA [Suspect]
     Indication: NON-SMALL CELL LUNG CANCER
     Route: 048
     Dates: start: 20120927, end: 20121025
  2. TARCEVA [Suspect]
     Route: 048
     Dates: start: 20121025, end: 20140305
  3. DICLOFENAC [Concomitant]
     Indication: PAIN
     Route: 048
     Dates: end: 20140330
  4. PARACETAMOL [Concomitant]
     Indication: PAIN
     Route: 048
     Dates: end: 20140330
  5. BETAMETHASONE [Concomitant]
     Indication: EYE IRRITATION
     Dosage: ONE APPLICATION, TWICE DAILY
     Route: 061
     Dates: end: 20140330
  6. AMITRIPTYLINE [Concomitant]
     Indication: PAIN
     Route: 048
     Dates: end: 20140330
  7. ORAMORPH [Concomitant]
     Indication: PAIN
     Route: 048
     Dates: end: 20140330

REACTIONS (6)
  - Cerebrovascular disorder [Fatal]
  - Pulmonary embolism [Unknown]
  - Cerebrovascular accident [Unknown]
  - Deep vein thrombosis [Unknown]
  - Dermatitis acneiform [Unknown]
  - Metastases to bone [Unknown]
